FAERS Safety Report 5189217-9 (Version None)
Quarter: 2006Q4

REPORT INFORMATION
  Report Type: 
  Country: None (occurrence: None)
  Receive Date: 20061215
  Receipt Date: 20061204
  Transmission Date: 20070319
  Serious: Yes (Other)
  Sender: FDA-Public Use
  Company Number: SPV1-2006-01964

PATIENT
  Age: 24 Year
  Sex: Male

DRUGS (3)
  1. ADDERALL XR 15 [Suspect]
     Indication: ATTENTION DEFICIT/HYPERACTIVITY DISORDER
     Dosage: 15 MG 1X/DAY, QD; ORAL
     Route: 048
     Dates: start: 20060901, end: 20061001
  2. VENTOLIN (SALBUTAMOL SULFATE) INHALER [Concomitant]
  3. CORTICOSTEROIDS INHALER [Concomitant]

REACTIONS (1)
  - ARRHYTHMIA [None]
